FAERS Safety Report 5824952-8 (Version None)
Quarter: 2008Q3

REPORT INFORMATION
  Report Type: 
  Country: None (occurrence: None)
  Receive Date: 20080728
  Receipt Date: 20080717
  Transmission Date: 20090109
  Serious: Yes (Death)
  Sender: FDA-Public Use
  Company Number: JP-ABBOTT-08P-087-0465604-00

PATIENT
  Age: 80 Year
  Sex: Male

DRUGS (16)
  1. LEUPROLIDE ACETATE [Suspect]
     Indication: PROSTATE CANCER STAGE II
     Route: 058
     Dates: start: 20061109, end: 20070720
  2. LEUPROLIDE ACETATE [Suspect]
     Dates: start: 20061012, end: 20061012
  3. BICALUTAMIDE [Concomitant]
     Indication: PROSTATE CANCER STAGE II
     Route: 048
     Dates: start: 20061012, end: 20070804
  4. PROPIVERINE HYDROCHLORIDE [Concomitant]
     Indication: NEUROGENIC BLADDER
     Route: 048
     Dates: start: 20061207, end: 20070607
  5. TAMSULOSIN HCL [Concomitant]
     Indication: BENIGN PROSTATIC HYPERPLASIA
     Route: 048
     Dates: end: 20061206
  6. NAFTOPIDIL [Concomitant]
     Indication: BENIGN PROSTATIC HYPERPLASIA
     Route: 048
     Dates: start: 20061207, end: 20070426
  7. DISTIGMINE BROMIDE [Concomitant]
     Indication: NEUROGENIC BLADDER
     Route: 048
     Dates: start: 20061109, end: 20061206
  8. ETIZOLAM [Concomitant]
     Indication: INSOMNIA
     Route: 048
  9. MONTELUKAST SODIUM [Concomitant]
     Indication: ASTHMA
     Route: 048
  10. SUCRALFATE [Concomitant]
     Indication: GASTRITIS
     Route: 048
  11. TICLOPIDINE HYDROCHLORIDE [Concomitant]
     Indication: THROMBOSIS PROPHYLAXIS
     Route: 048
  12. ISOSORBIDE DINITRATE [Concomitant]
     Indication: MYOCARDIAL ISCHAEMIA
     Route: 062
  13. ETHYL ICOSAPENTATE [Concomitant]
     Indication: ARTERIOSCLEROSIS
     Route: 048
  14. AMITRIPTYLINE HYDROCHLORIDE [Concomitant]
     Indication: DEPRESSION
     Route: 048
     Dates: start: 20070219, end: 20070804
  15. TOLTERODINE TARTRATE [Concomitant]
     Indication: NEUROGENIC BLADDER
     Route: 048
     Dates: start: 20070607, end: 20070804
  16. OXYGEN [Concomitant]
     Indication: EMPHYSEMA

REACTIONS (2)
  - EMPHYSEMA [None]
  - PNEUMOTHORAX [None]
